FAERS Safety Report 16931971 (Version 7)
Quarter: 2020Q1

REPORT INFORMATION
  Report Type: Report from Study
  Country: US (occurrence: US)
  Receive Date: 20191017
  Receipt Date: 20200205
  Transmission Date: 20200409
  Serious: Yes (Hospitalization, Other)
  Sender: FDA-Public Use
  Company Number: US-AVEXISPRA-CTR-AVXS12019-0025

PATIENT
  Age: 2 Year
  Sex: Female
  Weight: 11.9 kg

DRUGS (16)
  1. AVXS-101 [Suspect]
     Active Substance: ONASEMNOGENE ABEPARVOVEC
     Indication: SPINAL MUSCULAR ATROPHY
     Dosage: 13.2 X10E14, SINGLE
     Route: 042
     Dates: start: 20190830, end: 20190830
  2. CULTURELLE FOR KIDS [LACTOBACILLUS RHAMNOSUS] [Concomitant]
  3. PROBIOTICS NOS [Concomitant]
     Active Substance: PROBIOTICS NOS
  4. NYSTATIN AND TRIAMCINOLONE CREAM [Concomitant]
  5. PREDNISOLONE ACETATE. [Concomitant]
     Active Substance: PREDNISOLONE ACETATE
     Indication: PROPHYLAXIS
     Dosage: 2 MILLIGRAM/KILOGRAM, QD
     Dates: start: 20190829, end: 20190901
  6. PRILOSEC [Concomitant]
     Active Substance: OMEPRAZOLE MAGNESIUM
     Dosage: UNK
     Dates: start: 20190829
  7. DUONEB NEBULIZER SOLUTION [Concomitant]
  8. MIRALAX [Concomitant]
     Active Substance: POLYETHYLENE GLYCOL 3350
  9. SODIUM CHLORIDE NEBULISER SOLUTION [Concomitant]
  10. BETHKIS [Concomitant]
     Active Substance: TOBRAMYCIN
  11. PREDNISOLONE ACETATE. [Concomitant]
     Active Substance: PREDNISOLONE ACETATE
     Dosage: 1 MILLIGRAM/KILOGRAM
     Dates: start: 20190902
  12. CHOLECALCIFEROL [Concomitant]
     Active Substance: CHOLECALCIFEROL
  13. ORAPRED [Concomitant]
     Active Substance: PREDNISOLONE SODIUM PHOSPHATE
     Dosage: UNK
     Dates: start: 20191005
  14. ZYRTEC [Concomitant]
     Active Substance: CETIRIZINE HYDROCHLORIDE
  15. ZOFRAN [Concomitant]
     Active Substance: ONDANSETRON HYDROCHLORIDE
  16. GLYCERIN SUPPOSITORY [Concomitant]
     Active Substance: GLYCERIN

REACTIONS (2)
  - Autoimmune hepatitis [Recovered/Resolved]
  - Bradycardia [Recovered/Resolved]

NARRATIVE: CASE EVENT DATE: 20191005
